FAERS Safety Report 4964552-5 (Version None)
Quarter: 2006Q2

REPORT INFORMATION
  Report Type: 
  Country: None (occurrence: None)
  Receive Date: 20060406
  Receipt Date: 20060323
  Transmission Date: 20061013
  Serious: Yes (Other)
  Sender: FDA-Public Use
  Company Number: GB-GLAXOSMITHKLINE-B0417251A

PATIENT
  Sex: Male

DRUGS (1)
  1. ZYBAN [Suspect]
     Route: 048

REACTIONS (14)
  - ABNORMAL BEHAVIOUR [None]
  - ANXIETY [None]
  - CONFUSIONAL STATE [None]
  - DISINHIBITION [None]
  - DIZZINESS [None]
  - FEELING ABNORMAL [None]
  - FEELING JITTERY [None]
  - HALLUCINATION, VISUAL [None]
  - INSOMNIA [None]
  - MALAISE [None]
  - NAUSEA [None]
  - SLUGGISHNESS [None]
  - SUICIDAL IDEATION [None]
  - VISION BLURRED [None]
